FAERS Safety Report 21064851 (Version 1)
Quarter: 2022Q3

REPORT INFORMATION
  Report Type: Spontaneous
  Country: IT (occurrence: IT)
  Receive Date: 20220711
  Receipt Date: 20220711
  Transmission Date: 20221027
  Serious: Yes (Other)
  Sender: FDA-Public Use
  Company Number: IT-ENDO PHARMACEUTICALS INC-2022-004029

PATIENT
  Age: 38 Year
  Sex: Male

DRUGS (2)
  1. TESTIM [Suspect]
     Active Substance: TESTOSTERONE
     Indication: Muscle building therapy
     Dosage: UNK UNKNOWN, UNKNOWN
     Route: 065
  2. UNSPECIFIED INGREDIENT [Suspect]
     Active Substance: UNSPECIFIED INGREDIENT
     Indication: Muscle building therapy
     Dosage: UNK UNKNOWN, UNKNOWN
     Route: 065

REACTIONS (8)
  - Acute kidney injury [Unknown]
  - Retinopathy [Unknown]
  - Hypertension [Unknown]
  - Drug abuse [Unknown]
  - Ventricular hypertrophy [Unknown]
  - Hypercholesterolaemia [Unknown]
  - Visual field defect [Unknown]
  - Off label use [Unknown]
